FAERS Safety Report 9871750 (Version 1)
Quarter: 2014Q1

REPORT INFORMATION
  Report Type: Spontaneous
  Country: US (occurrence: US)
  Receive Date: 20140205
  Receipt Date: 20140205
  Transmission Date: 20141002
  Serious: No
  Sender: FDA-Public Use
  Company Number: US-AMGEN-USASP2013044342

PATIENT
  Sex: Female

DRUGS (4)
  1. NEULASTA [Suspect]
     Indication: PANCREATIC CARCINOMA
     Dosage: UNK
     Route: 065
  2. NEULASTA [Suspect]
     Indication: BILE DUCT CANCER
  3. TAXOTERE [Concomitant]
     Indication: PANCREATIC CARCINOMA
     Dosage: UNK
  4. TAXOTERE [Concomitant]
     Indication: BILE DUCT CANCER

REACTIONS (1)
  - White blood cell count increased [Unknown]
